FAERS Safety Report 21307723 (Version 3)
Quarter: 2022Q4

REPORT INFORMATION
  Report Type: Spontaneous
  Country: JP (occurrence: JP)
  Receive Date: 20220908
  Receipt Date: 20221205
  Transmission Date: 20230112
  Serious: Yes (Other)
  Sender: FDA-Public Use
  Company Number: JP-PFIZER INC-PV202200057817

PATIENT
  Age: 54 Year
  Sex: Male
  Weight: 73.9 kg

DRUGS (14)
  1. SUTENT [Suspect]
     Active Substance: SUNITINIB MALATE
     Indication: Gastrointestinal stromal tumour
     Dosage: 50 MG/DAY, CYCLIC (ADMINISTRATION FOR 4 WEEKS AND CESSATION FOR 2 WEEKS)
     Route: 048
     Dates: start: 20220725, end: 20220808
  2. PREDNISOLONE [Concomitant]
     Active Substance: PREDNISOLONE
     Indication: Asthma
     Dosage: 10 MG, 2X/DAY
     Route: 048
     Dates: start: 20210807
  3. CLARITHROMYCIN [Concomitant]
     Active Substance: CLARITHROMYCIN
     Indication: Bronchitis
     Dosage: 200 MG, 2X/DAY
     Route: 048
     Dates: start: 20210807
  4. SULFAMETHOXAZOLE\TRIMETHOPRIM [Concomitant]
     Active Substance: SULFAMETHOXAZOLE\TRIMETHOPRIM
     Indication: Antifungal prophylaxis
     Dosage: 1 DF, 1X/DAY
     Route: 048
     Dates: start: 20210805
  5. NEXIUM [Concomitant]
     Active Substance: ESOMEPRAZOLE MAGNESIUM
     Indication: Gastrooesophageal reflux disease
     Dosage: 20 MG, 1X/DAY
     Route: 048
     Dates: start: 20210805
  6. IMURAN [Concomitant]
     Active Substance: AZATHIOPRINE
     Indication: Bronchitis
     Dosage: 50 MG, 1X/DAY
     Route: 048
     Dates: start: 20211014
  7. ALENDRONATE [Concomitant]
     Active Substance: ALENDRONATE SODIUM
     Indication: Osteoporosis
     Dosage: 35 MG, WEEKLY
     Route: 048
     Dates: start: 20210805
  8. MONTELUKAST SODIUM [Concomitant]
     Active Substance: MONTELUKAST SODIUM
     Indication: Asthma
     Dosage: 10 MG, 1X/DAY
     Route: 048
     Dates: start: 20210610
  9. FUROSEMIDE [Concomitant]
     Active Substance: FUROSEMIDE
     Indication: Oedema due to hepatic disease
     Dosage: 40 MG, 1X/DAY
     Route: 048
     Dates: start: 20210621
  10. SAMSCA [Concomitant]
     Active Substance: TOLVAPTAN
     Indication: Oedema due to hepatic disease
     Dosage: 7.5 MG, 1X/DAY
     Route: 048
     Dates: start: 20210621
  11. GLYCOPYRROLATE\INDACATEROL\MOMETASONE FUROATE [Concomitant]
     Active Substance: GLYCOPYRROLATE\INDACATEROL\MOMETASONE FUROATE
     Indication: Asthma
     Dosage: HIGH DOSE, DAILY
     Route: 055
     Dates: start: 20210729
  12. TULOBUTEROL [Concomitant]
     Active Substance: TULOBUTEROL
     Indication: Asthma
     Dosage: 2 MG, 1X/DAY
     Route: 062
     Dates: start: 20210729
  13. AMBROXOL HYDROCHLORIDE [Concomitant]
     Active Substance: AMBROXOL HYDROCHLORIDE
     Indication: Asthma
     Dosage: 45 MG, 1X/DAY
     Route: 048
     Dates: start: 20211014
  14. HEPARINOID [Concomitant]
     Indication: Asteatosis
     Dosage: AS NEEDED ( TWICEOR THREE TINES A DAY)
     Route: 062
     Dates: start: 20220725, end: 20220829

REACTIONS (9)
  - Obliterative bronchiolitis [Not Recovered/Not Resolved]
  - Condition aggravated [Not Recovered/Not Resolved]
  - Alanine aminotransferase increased [Recovered/Resolved]
  - Aspartate aminotransferase increased [Recovered/Resolved]
  - Blood cholesterol increased [Unknown]
  - Blood pressure increased [Unknown]
  - Blood lactate dehydrogenase increased [Unknown]
  - Gamma-glutamyltransferase increased [Unknown]
  - Neutrophil count increased [Unknown]

NARRATIVE: CASE EVENT DATE: 20220725
